FAERS Safety Report 23605294 (Version 1)
Quarter: 2024Q1

REPORT INFORMATION
  Report Type: Spontaneous
  Country: US (occurrence: US)
  Receive Date: 20240307
  Receipt Date: 20240307
  Transmission Date: 20240409
  Serious: Yes (Hospitalization, Other)
  Sender: FDA-Public Use
  Company Number: US-UCBSA-2024010935

PATIENT
  Age: 3 Year
  Sex: Female

DRUGS (9)
  1. KEPPRA [Suspect]
     Active Substance: LEVETIRACETAM
     Indication: Seizure
     Dosage: UNK
  2. KEPPRA [Suspect]
     Active Substance: LEVETIRACETAM
     Dosage: UNK
     Dates: start: 20231103
  3. DAYBUE [Suspect]
     Active Substance: TROFINETIDE
     Indication: Rett syndrome
     Dosage: UNK
     Dates: start: 20230509
  4. DAYBUE [Suspect]
     Active Substance: TROFINETIDE
     Dosage: SPIT OUT HALF OF DOSE THIS
  5. DAYBUE [Suspect]
     Active Substance: TROFINETIDE
     Dosage: 30 MILLILITER, 2X/DAY (BID)
     Route: 048
  6. DAYBUE [Suspect]
     Active Substance: TROFINETIDE
     Dosage: 30 MILLILITER, 2X/DAY (BID)
     Route: 048
  7. DAYBUE [Suspect]
     Active Substance: TROFINETIDE
     Dosage: 30 MILLILITER, ONCE DAILY (QD) AT NIGHT
     Route: 048
  8. METAMUCIL FIBER GUMMIES [Concomitant]
     Indication: Product used for unknown indication
     Dosage: UNK
  9. SIMETHICONE (DIMETHICONE) [Concomitant]
     Active Substance: DIMETHICONE
     Indication: Product used for unknown indication
     Dosage: INFANT DROPS

REACTIONS (19)
  - Seizure [Unknown]
  - Fluid intake reduced [Unknown]
  - Nasopharyngitis [Unknown]
  - Seasonal allergy [Unknown]
  - Diarrhoea [Recovering/Resolving]
  - Decreased appetite [Unknown]
  - Aggression [Unknown]
  - Pharyngitis streptococcal [Recovered/Resolved]
  - Behaviour disorder [Unknown]
  - Upper respiratory tract infection [Recovered/Resolved]
  - Urinary tract infection [Unknown]
  - Vomiting [Unknown]
  - Underdose [Unknown]
  - Inappropriate schedule of product administration [Unknown]
  - Incorrect dose administered [Unknown]
  - Product storage error [Unknown]
  - Product dose omission issue [Unknown]
  - Refusal of treatment by patient [Unknown]
  - Product use complaint [Unknown]

NARRATIVE: CASE EVENT DATE: 20230501
